FAERS Safety Report 9003796 (Version 1)
Quarter: 2013Q1

REPORT INFORMATION
  Report Type: Spontaneous
  Country: US (occurrence: US)
  Receive Date: 20130108
  Receipt Date: 20130108
  Transmission Date: 20140127
  Serious: No
  Sender: FDA-Public Use
  Company Number: US-GLAXOSMITHKLINE-A0981306A

PATIENT
  Age: 63 Year
  Sex: Female

DRUGS (5)
  1. LOVAZA [Suspect]
     Indication: BLOOD TRIGLYCERIDES INCREASED
     Route: 048
     Dates: start: 20120614
  2. ERYTHROMYCIN [Concomitant]
  3. NEXIUM [Concomitant]
  4. ENALAPRIL [Concomitant]
  5. XANAX [Concomitant]

REACTIONS (1)
  - Dyspepsia [Recovering/Resolving]
